FAERS Safety Report 17926389 (Version 1)
Quarter: 2020Q2

REPORT INFORMATION
  Report Type: Spontaneous
  Country: US (occurrence: US)
  Receive Date: 20200622
  Receipt Date: 20200622
  Transmission Date: 20200714
  Serious: Yes (Hospitalization, Other)
  Sender: FDA-Public Use
  Company Number: US-GLAXOSMITHKLINE-US2020GSK101191

PATIENT
  Age: 36 Year
  Sex: Female

DRUGS (7)
  1. OXYCODONE EXTENDED RELEASE [Suspect]
     Active Substance: OXYCODONE
     Indication: MIGRAINE
     Dosage: 30 MG Q12 H
  2. LAMOTRIGINE. [Suspect]
     Active Substance: LAMOTRIGINE
     Indication: BIPOLAR DISORDER
     Dosage: 200 MG DAILY
     Route: 048
  3. FIORICET [Suspect]
     Active Substance: ACETAMINOPHEN\BUTALBITAL\CAFFEINE
     Indication: MIGRAINE
     Dosage: UNK
  4. SUMATRIPTAN. [Suspect]
     Active Substance: SUMATRIPTAN
     Indication: MIGRAINE
     Dosage: UNK
  5. OXYCODONE IMMEDIATE RELEASE [Suspect]
     Active Substance: OXYCODONE
     Dosage: 10 MG Q4H PRN
  6. OXYCODONE [Suspect]
     Active Substance: OXYCODONE
     Indication: MIGRAINE
     Dosage: 20 MG AT BEDNIGHT PRORE NATA (PRN)
  7. OXYCODONE IMMEDIATE RELEASE [Suspect]
     Active Substance: OXYCODONE
     Indication: MIGRAINE
     Dosage: 20 MG AT BEDTIME PRN

REACTIONS (18)
  - Medication overuse headache [Recovered/Resolved]
  - Vomiting [Recovered/Resolved]
  - Photophobia [Recovered/Resolved]
  - Phonophobia [Recovered/Resolved]
  - Musculoskeletal stiffness [Recovered/Resolved]
  - Balance disorder [Recovered/Resolved]
  - Nausea [Recovered/Resolved]
  - Visual acuity tests abnormal [Recovered/Resolved]
  - Bedridden [Recovered/Resolved]
  - Intracranial pressure increased [Recovered/Resolved]
  - Treatment failure [Unknown]
  - Meningitis aseptic [Recovered/Resolved]
  - Back pain [Recovered/Resolved]
  - Weight decreased [Recovered/Resolved]
  - Pleocytosis [Recovered/Resolved]
  - Pyrexia [Recovered/Resolved]
  - Leukopenia [Recovered/Resolved]
  - Headache [Recovered/Resolved]
